FAERS Safety Report 12297858 (Version 1)
Quarter: 2016Q2

REPORT INFORMATION
  Report Type: Spontaneous
  Country: JP (occurrence: JP)
  Receive Date: 20160422
  Receipt Date: 20160422
  Transmission Date: 20160815
  Serious: Yes (Other)
  Sender: FDA-Public Use
  Company Number: JP-PFIZER INC-2016226085

PATIENT
  Sex: Female

DRUGS (4)
  1. CELECOX [Suspect]
     Active Substance: CELECOXIB
     Indication: ANALGESIC THERAPY
     Dosage: UNK
     Route: 048
  2. RIZE [Suspect]
     Active Substance: CLOTIAZEPAM
     Dosage: UNK
     Route: 048
  3. SOLANAX [Suspect]
     Active Substance: ALPRAZOLAM
     Route: 048
  4. RHYTHMY [Suspect]
     Active Substance: RILMAZAFONE HYDROCHLORIDE
     Dosage: UNK
     Route: 048

REACTIONS (15)
  - Pain in extremity [Unknown]
  - General physical condition abnormal [Unknown]
  - Red blood cell count decreased [Unknown]
  - Peripheral swelling [Recovered/Resolved]
  - Middle insomnia [Unknown]
  - Rheumatoid factor increased [Unknown]
  - Eyelid oedema [Unknown]
  - Muscular weakness [Unknown]
  - Fall [Unknown]
  - Blood pressure increased [Unknown]
  - Insomnia [Unknown]
  - Gait disturbance [Unknown]
  - Haemoglobin decreased [Unknown]
  - Contusion [Unknown]
  - Hypoaesthesia [Unknown]
